FAERS Safety Report 8265312-2 (Version None)
Quarter: 2012Q2

REPORT INFORMATION
  Report Type: 
  Country: None (occurrence: None)
  Receive Date: 20120406
  Receipt Date: 20120328
  Transmission Date: 20120825
  Serious: Yes (Hospitalization)
  Sender: FDA-Public Use
  Company Number: US-JNJFOC-20120400604

PATIENT
  Sex: Female
  Weight: 32.6 kg

DRUGS (7)
  1. AZATHIOPRINE [Concomitant]
  2. PREDNISONE TAB [Concomitant]
  3. MUPIROCIN [Suspect]
     Indication: IMPETIGO
     Route: 065
  4. MESALAMINE [Concomitant]
     Route: 048
  5. BENADRYL [Concomitant]
  6. CIPROFLOXACIN [Suspect]
     Indication: PRODUCT USED FOR UNKNOWN INDICATION
     Route: 065
  7. REMICADE [Suspect]
     Indication: INFLAMMATORY BOWEL DISEASE
     Route: 042
     Dates: start: 20090619

REACTIONS (1)
  - IMPETIGO [None]
